FAERS Safety Report 7275743-5 (Version None)
Quarter: 2011Q1

REPORT INFORMATION
  Report Type: 
  Country: None (occurrence: None)
  Receive Date: 20110202
  Receipt Date: 20110202
  Transmission Date: 20110831
  Serious: No
  Sender: FDA-Public Use
  Company Number: None

PATIENT
  Sex: Female

DRUGS (1)
  1. THALOMID [Suspect]
     Dosage: TAKE 1 CAPSULE BY MOUTH EVERY DAY 50 MG PO
     Route: 048
     Dates: start: 20110105

REACTIONS (1)
  - PYREXIA [None]
